FAERS Safety Report 23130071 (Version 3)
Quarter: 2024Q1

REPORT INFORMATION
  Report Type: Spontaneous
  Country: PL (occurrence: PL)
  Receive Date: 20231031
  Receipt Date: 20240325
  Transmission Date: 20240410
  Serious: Yes (Hospitalization, Disabling, Other)
  Sender: FDA-Public Use
  Company Number: PL-002147023-NVSC2021PL276127

PATIENT
  Age: 83 Year
  Sex: Female
  Weight: 91 kg

DRUGS (100)
  1. BENSERAZIDE HYDROCHLORIDE\LEVODOPA [Suspect]
     Active Substance: BENSERAZIDE HYDROCHLORIDE\LEVODOPA
     Indication: Product used for unknown indication
     Dosage: 62.5 MG, 8 HR
     Route: 065
  2. DABIGATRAN [Suspect]
     Active Substance: DABIGATRAN
     Indication: Product used for unknown indication
     Dosage: 110 MG, BID/DRUG LIST AFTER MODIFICATION
     Route: 065
  3. DABIGATRAN [Suspect]
     Active Substance: DABIGATRAN
     Dosage: 110 MG, BID/DRUG LIST AT THE ADMISSION
     Route: 065
  4. DENOSUMAB [Suspect]
     Active Substance: DENOSUMAB
     Indication: Product used for unknown indication
     Dosage: 60 MG, UNKNOWN
     Route: 065
  5. DONEPEZIL [Suspect]
     Active Substance: DONEPEZIL
     Indication: Product used for unknown indication
     Dosage: 5 MG, UNKNOWN
     Route: 065
  6. HYDROXYZINE [Suspect]
     Active Substance: HYDROXYZINE HYDROCHLORIDE
     Indication: Product used for unknown indication
     Dosage: 40 MG, QD/1-0-0/25 MG, AD HOC, USUALLY
     Route: 065
  7. IMDUR [Suspect]
     Active Substance: ISOSORBIDE MONONITRATE
     Indication: Product used for unknown indication
     Dosage: UNK (50 MG, AD HOC, USUALLY,1-2 TABLETS A DAY)
     Route: 065
  8. BENSERAZIDE\LEVODOPA [Suspect]
     Active Substance: BENSERAZIDE\LEVODOPA
     Indication: Product used for unknown indication
     Dosage: 187.5 MG, QD (62.5 MG, TID)
     Route: 065
  9. TORSEMIDE [Suspect]
     Active Substance: TORSEMIDE
     Indication: Product used for unknown indication
     Dosage: 5 MG, QD
     Route: 065
  10. VITAMIN D3 [Suspect]
     Active Substance: CHOLECALCIFEROL
     Indication: Product used for unknown indication
     Dosage: UNK UNK, UNKNOWN
     Route: 065
  11. ZOLPIDEM [Suspect]
     Active Substance: ZOLPIDEM TARTRATE
     Indication: Depression
     Dosage: 10 MG, 1X PER DAY
     Route: 065
  12. ZOLPIDEM [Suspect]
     Active Substance: ZOLPIDEM TARTRATE
     Indication: Product used for unknown indication
     Dosage: 100 MG, QD/0-0-1
     Route: 065
  13. ACARBOSE [Concomitant]
     Active Substance: ACARBOSE
     Indication: Hyperglycaemia
     Dosage: 3.000DF QD
     Route: 048
  14. ALLOPURINOL [Concomitant]
     Active Substance: ALLOPURINOL
     Indication: Product used for unknown indication
     Route: 065
  15. ALLOPURINOL [Concomitant]
     Active Substance: ALLOPURINOL
     Indication: Product used for unknown indication
     Route: 065
  16. AMLODIPINE BESYLATE [Concomitant]
     Active Substance: AMLODIPINE BESYLATE
     Indication: Hypertension
     Dosage: 1 DOSAGE FORM, QD
     Route: 065
  17. ATORVASTATIN [Concomitant]
     Active Substance: ATORVASTATIN
     Indication: Product used for unknown indication
     Route: 065
  18. CITALOPRAM [Concomitant]
     Active Substance: CITALOPRAM\CITALOPRAM HYDROBROMIDE
     Indication: Product used for unknown indication
     Route: 065
  19. GLICLAZIDE [Concomitant]
     Active Substance: GLICLAZIDE
     Indication: Product used for unknown indication
     Dosage: 60 MG, TID/1-1-1
     Route: 065
  20. GLICLAZIDE [Concomitant]
     Active Substance: GLICLAZIDE
     Route: 065
  21. HYDROCHLOROTHIAZIDE [Concomitant]
     Active Substance: HYDROCHLOROTHIAZIDE
     Indication: Product used for unknown indication
     Route: 065
  22. HYDROCHLOROTHIAZIDE [Concomitant]
     Active Substance: HYDROCHLOROTHIAZIDE
     Indication: Product used for unknown indication
     Route: 065
  23. INSULIN NOS [Concomitant]
     Active Substance: INSULIN NOS
     Indication: Blood glucose abnormal
     Dosage: DAILY
     Route: 065
  24. LAN DI [Concomitant]
     Indication: Product used for unknown indication
     Dosage: UNK
     Route: 065
  25. LEVOTHYROXINE [Concomitant]
     Active Substance: LEVOTHYROXINE\LEVOTHYROXINE SODIUM
     Indication: Product used for unknown indication
     Route: 065
  26. METFORMIN [Concomitant]
     Active Substance: METFORMIN HYDROCHLORIDE
     Indication: Product used for unknown indication
     Dosage: UNK
     Route: 065
  27. METOPROLOL [Concomitant]
     Active Substance: METOPROLOL
     Indication: Product used for unknown indication
     Route: 065
  28. METOPROLOL [Concomitant]
     Active Substance: METOPROLOL
     Indication: Product used for unknown indication
     Route: 065
  29. Q-MIND [Concomitant]
     Indication: Product used for unknown indication
     Dosage: 25 MG, QD/0-0-1
     Route: 065
  30. QUETIAPINE [Concomitant]
     Active Substance: QUETIAPINE
     Indication: Product used for unknown indication
     Dosage: 25 MG, QD/ 0-0-1
     Route: 065
  31. RAMIPRIL [Concomitant]
     Active Substance: RAMIPRIL
     Indication: Product used for unknown indication
     Route: 065
  32. RUFLOXACIN [Concomitant]
     Active Substance: RUFLOXACIN
     Indication: Nasopharyngitis
     Dosage: 1 DOSAGE FORM, BID
     Route: 048
  33. ALBUTEROL [Concomitant]
     Active Substance: ALBUTEROL
     Indication: Product used for unknown indication
     Route: 065
  34. ALBUTEROL [Concomitant]
     Active Substance: ALBUTEROL
     Indication: Product used for unknown indication
     Route: 065
  35. HYDROTALCITE [Concomitant]
     Active Substance: HYDROTALCITE
     Indication: Abdominal pain upper
     Dosage: 1
     Route: 065
  36. TORSEMIDE [Concomitant]
     Active Substance: TORSEMIDE
     Indication: Product used for unknown indication
     Dosage: 5 MG, QD
     Route: 065
  37. TRAMADOL HYDROCHLORIDE [Concomitant]
     Active Substance: TRAMADOL HYDROCHLORIDE
     Indication: Product used for unknown indication
     Route: 065
  38. VORTIOXETINE [Concomitant]
     Active Substance: VORTIOXETINE
     Indication: Product used for unknown indication
     Dosage: 10 MG, QD/0-0-1
     Route: 065
  39. ALLOPURINOL [Interacting]
     Active Substance: ALLOPURINOL
     Indication: Product used for unknown indication
     Dosage: 100 MG, QD (1-0-0), IN EVENING
     Route: 048
  40. ATORVASTATIN [Interacting]
     Active Substance: ATORVASTATIN
     Indication: Product used for unknown indication
     Dosage: 20 MG, QD (0-0-1)
     Route: 048
  41. ALPRAZOLAM [Interacting]
     Active Substance: ALPRAZOLAM
     Dosage: ON DEMAND, TYPICALLY 2 X/24 H
     Route: 048
  42. ALPRAZOLAM [Interacting]
     Active Substance: ALPRAZOLAM
     Dosage: 1 MG, QD
     Route: 065
  43. ALPRAZOLAM [Interacting]
     Active Substance: ALPRAZOLAM
     Indication: Depression
     Dosage: 2 DF, QD/0.5 MG, 12 HRS (AS NECESSARY)
     Route: 065
  44. BETAHISTINE HYDROCHLORIDE [Interacting]
     Active Substance: BETAHISTINE HYDROCHLORIDE
     Dosage: 1024 MG, Q24H
     Route: 065
  45. BETAHISTINE HYDROCHLORIDE [Interacting]
     Active Substance: BETAHISTINE HYDROCHLORIDE
     Dosage: 20 MG, Q12H, 40 MG QD
     Route: 048
  46. BETAHISTINE HYDROCHLORIDE [Interacting]
     Active Substance: BETAHISTINE HYDROCHLORIDE
     Indication: Product used for unknown indication
     Dosage: 24 MG, QD (0-1-0)
     Route: 065
  47. CITALOPRAM [Interacting]
     Active Substance: CITALOPRAM\CITALOPRAM HYDROBROMIDE
     Indication: Depression
     Dosage: 40 MG, QD (0-0-1), AT ADMISSION
     Route: 048
  48. DABIGATRAN ETEXILATE [Interacting]
     Active Substance: DABIGATRAN ETEXILATE
     Dosage: 20 MG, Q12H
     Route: 065
  49. DABIGATRAN ETEXILATE [Interacting]
     Active Substance: DABIGATRAN ETEXILATE
     Indication: Product used for unknown indication
     Dosage: 220 MG, QD, 110 MG, BID (1-0-1, AT LEAST FOR 2 YEARS STOPPED)
     Route: 065
  50. FUROSEMIDE [Interacting]
     Active Substance: FUROSEMIDE
     Indication: Product used for unknown indication
     Dosage: 120MG,QD(40 MG,TID,3DFEVERY2ND D)
     Route: 048
  51. GLICLAZIDE [Interacting]
     Active Substance: GLICLAZIDE
     Indication: Type 2 diabetes mellitus
     Dosage: 60 MG, TID (1-1-1, EXCESSIVE DOSES)
     Route: 048
  52. DEXTROSE [Interacting]
     Active Substance: DEXTROSE\DEXTROSE MONOHYDRATE
     Indication: Product used for unknown indication
     Dosage: 1.5MG INTERMITTENTLY(1.5 PLUS 125 MG) AS NEEDED
     Route: 065
  53. DEXTROSE [Interacting]
     Active Substance: DEXTROSE\DEXTROSE MONOHYDRATE
     Dosage: 20 MG, Q12H (40 MG DAILY)
     Route: 065
  54. HYDROCHLOROTHIAZIDE [Interacting]
     Active Substance: HYDROCHLOROTHIAZIDE
     Indication: Product used for unknown indication
     Dosage: 25 MG,QD (1-0-0),IN MORNING
     Route: 048
  55. HYDROXYZINE [Interacting]
     Active Substance: HYDROXYZINE HYDROCHLORIDE
     Indication: Product used for unknown indication
     Dosage: 25 MILLIGRAM, AS NEEDED, AVERAGE 2 X /24 H
     Route: 065
  56. HYDROXYZINE HYDROCHLORIDE [Interacting]
     Active Substance: HYDROXYZINE HYDROCHLORIDE
     Indication: Product used for unknown indication
     Dosage: 25 MG, QD (AVG 2X2 QD)
     Route: 065
  57. HYDROXYZINE HYDROCHLORIDE [Interacting]
     Active Substance: HYDROXYZINE HYDROCHLORIDE
     Dosage: 40 MG, QD (1-0-0)
     Route: 065
  58. HYDROXYZINE HYDROCHLORIDE [Interacting]
     Active Substance: HYDROXYZINE HYDROCHLORIDE
     Dosage: 50 MG, QD (25 MG, AS NEEDED, AV. TWICE DAILY
     Route: 065
  59. ISOSORBIDE MONONITRATE [Interacting]
     Active Substance: ISOSORBIDE MONONITRATE
     Indication: Coronary artery disease
     Dosage: 100MG,QD(50 MG BID)(ADHOC,AVG1-2/1-2X/24H)
     Route: 048
  60. POTASSIUM CHLORIDE [Interacting]
     Active Substance: POTASSIUM CHLORIDE
     Dosage: 20 MG, Q12H (40 MG, QD)
     Route: 065
  61. POTASSIUM CHLORIDE [Interacting]
     Active Substance: POTASSIUM CHLORIDE
     Indication: Product used for unknown indication
     Dosage: 391 MG (1 TABLET EVERY OTHER DAYS/ 1 DF EVERY 2 DAYS/391 MG K PLUS)
     Route: 065
  62. POTASSIUM CHLORIDE [Interacting]
     Active Substance: POTASSIUM CHLORIDE
     Dosage: 782 MG, QD (391 MG, BID)
     Route: 065
  63. LEVOTHYROXINE SODIUM [Interacting]
     Active Substance: LEVOTHYROXINE SODIUM
     Indication: Product used for unknown indication
     Dosage: 100 UG, QD (1-0-0) AT LEAST FOR 2 YRS
     Route: 065
  64. LEVOTHYROXINE SODIUM [Interacting]
     Active Substance: LEVOTHYROXINE SODIUM
     Dosage: 20 MG, Q12H
     Route: 065
  65. LEVOTHYROXINE SODIUM [Interacting]
     Active Substance: LEVOTHYROXINE SODIUM
     Dosage: 25 MG, Q24H
     Route: 065
  66. METFORMIN [Interacting]
     Active Substance: METFORMIN HYDROCHLORIDE
     Indication: Type 2 diabetes mellitus
     Dosage: UNK
     Route: 065
  67. METOPROLOL [Interacting]
     Active Substance: METOPROLOL
     Indication: Hypertension
     Dosage: 50 MG, BID (1-0-1/2, 100 MG QD)
     Route: 048
  68. METOCLOPRAMIDE [Interacting]
     Active Substance: METOCLOPRAMIDE
     Dosage: 10 MILLIGRAM, 2 TABLETS AS NEEDED, IN CASE OF CONSTIPATION, BUT FOR MANY MONTHS
     Route: 065
  69. METOCLOPRAMIDE [Interacting]
     Active Substance: METOCLOPRAMIDE
     Indication: Constipation
     Dosage: AS NEEDED
     Route: 065
  70. METOCLOPRAMIDE [Interacting]
     Active Substance: METOCLOPRAMIDE
     Dosage: ON DEMAND IN THE EVENT OF CONSTIPATION (2 TABLETS), BUT FOR MANY MONTHS
     Route: 065
  71. METOCLOPRAMIDE [Interacting]
     Active Substance: METOCLOPRAMIDE
     Dosage: (INTERMITTENTLY IN CASE OF CONSTIPATION FOR MANY MONTHS)
     Route: 065
  72. METOCLOPRAMIDE [Interacting]
     Active Substance: METOCLOPRAMIDE
     Dosage: PRN
     Route: 048
  73. METOCLOPRAMIDE [Interacting]
     Active Substance: METOCLOPRAMIDE
     Dosage: UNK
     Route: 065
  74. METOCLOPRAMIDE HYDROCHLORIDE [Interacting]
     Active Substance: METOCLOPRAMIDE HYDROCHLORIDE
     Indication: Constipation
     Dosage: 10 MG (AS NECESSARY 2 TABLETS, 2 DF)
     Route: 065
  75. METOCLOPRAMIDE HYDROCHLORIDE [Interacting]
     Active Substance: METOCLOPRAMIDE HYDROCHLORIDE
     Dosage: 20 MG (AS NECESSARY 2 TABLETS IN CASE OF CONSTIPATION FOR MANY MONTHS)
     Route: 065
  76. NIKETHAMIDE [Interacting]
     Active Substance: NIKETHAMIDE
     Indication: Product used for unknown indication
     Dosage: 125MG(INTERMITTENTLY)(1.5 PLUS125 MG)ASNEEDED
     Route: 065
  77. NIKETHAMIDE [Interacting]
     Active Substance: NIKETHAMIDE
     Dosage: 20 MG, Q12H
     Route: 065
  78. NIKETHAMIDE [Interacting]
     Active Substance: NIKETHAMIDE
     Indication: Product used for unknown indication
     Dosage: 125 MG
     Route: 065
  79. OMEPRAZOLE [Interacting]
     Active Substance: OMEPRAZOLE
     Indication: Product used for unknown indication
     Dosage: 1-1-0
     Route: 065
  80. OMEPRAZOLE [Interacting]
     Active Substance: OMEPRAZOLE
     Dosage: 1-1-0
     Route: 048
  81. OMEPRAZOLE [Interacting]
     Active Substance: OMEPRAZOLE
     Dosage: 200.000MG QD
     Route: 065
  82. OMEPRAZOLE [Interacting]
     Active Substance: OMEPRAZOLE
     Dosage: 40.000MG QD
     Route: 065
  83. OMEPRAZOLE MAGNESIUM [Interacting]
     Active Substance: OMEPRAZOLE MAGNESIUM
     Indication: Product used for unknown indication
     Dosage: 40.000MG
     Route: 048
  84. OMEPRAZOLE [Interacting]
     Active Substance: OMEPRAZOLE
     Dosage: 100 MG, BID 1-1-0
     Route: 048
  85. OMEPRAZOLE [Interacting]
     Active Substance: OMEPRAZOLE
     Indication: Product used for unknown indication
     Dosage: 20 MG, BID (1-1-0)
     Route: 048
  86. ACETAMINOPHEN [Interacting]
     Active Substance: ACETAMINOPHEN
     Indication: Product used for unknown indication
     Dosage: 1000 MG, QD (500 MG, BID/1-0-1)
     Route: 048
  87. ACETAMINOPHEN [Interacting]
     Active Substance: ACETAMINOPHEN
     Dosage: 20 MG, Q12H
     Route: 065
  88. ACETAMINOPHEN [Interacting]
     Active Substance: ACETAMINOPHEN
     Dosage: 500 MG, QD (0-0-1), IN THE EVENING
     Route: 048
  89. POTASSIUM CHLORIDE [Interacting]
     Active Substance: POTASSIUM CHLORIDE
     Indication: Product used for unknown indication
     Dosage: 1 DF EVERY 2 DAYS/391 MG K
     Route: 065
  90. POTASSIUM CHLORIDE [Interacting]
     Active Substance: POTASSIUM CHLORIDE
     Dosage: 391 MG
     Route: 065
  91. RAMIPRIL [Interacting]
     Active Substance: RAMIPRIL
     Dosage: 1 DOSAGE FORM, QD
     Route: 065
  92. RAMIPRIL [Interacting]
     Active Substance: RAMIPRIL
     Dosage: 100 MG, QD (50 MG Q12H)
     Route: 048
  93. RAMIPRIL [Interacting]
     Active Substance: RAMIPRIL
     Indication: Cardiac failure
     Dosage: 5 MG, QD (1-0-0, AT LEAST FOR 2 YEARS, STOPPED)
     Route: 048
  94. ALBUTEROL SULFATE [Interacting]
     Active Substance: ALBUTEROL SULFATE
     Indication: Product used for unknown indication
     Dosage: 100 UG/AD HOC (100 MICOGRAM, AS NEEDED, INTERMITTENTLY)
     Route: 065
  95. ALBUTEROL SULFATE [Interacting]
     Active Substance: ALBUTEROL SULFATE
     Dosage: 20 MG, BID
     Route: 065
  96. SPIRONOLACTONE [Interacting]
     Active Substance: SPIRONOLACTONE
     Indication: Product used for unknown indication
     Dosage: 100 MG,QD(0-1-0,ATLEAST FOR 2 YEARS)
     Route: 065
  97. TRAMADOL HYDROCHLORIDE [Interacting]
     Active Substance: TRAMADOL HYDROCHLORIDE
     Indication: Pain
     Dosage: 2 TABLET (100 MG, AS NEEDED 2 TABLETS, 200 MG INTERMITTENTLY)
     Route: 048
  98. TRAMADOL HYDROCHLORIDE [Interacting]
     Active Substance: TRAMADOL HYDROCHLORIDE
     Dosage: 20 MG, Q12H
     Route: 048
  99. TRAMADOL HYDROCHLORIDE [Interacting]
     Active Substance: TRAMADOL HYDROCHLORIDE
     Dosage: 50 MG, IN CASE OF PAIN
     Route: 048
  100. ZOLPIDEM [Interacting]
     Active Substance: ZOLPIDEM TARTRATE
     Indication: Depression
     Dosage: 100 MG, QD (0-0-1, 1 DF)
     Route: 048

REACTIONS (74)
  - Fall [Recovering/Resolving]
  - Osteoporosis [Recovering/Resolving]
  - Parkinsonism [Recovering/Resolving]
  - Dementia [Unknown]
  - Drug dependence [Unknown]
  - Hypoglycaemia [Recovered/Resolved]
  - Drug interaction [Unknown]
  - Melaena [Unknown]
  - Arthralgia [Unknown]
  - Abdominal pain upper [Unknown]
  - Pruritus [Unknown]
  - Urinary retention [Recovered/Resolved]
  - Syncope [Recovering/Resolving]
  - Insomnia [Unknown]
  - Diabetes mellitus inadequate control [Unknown]
  - Mobility decreased [Unknown]
  - Hyponatraemia [Unknown]
  - Depression [Unknown]
  - Hypotension [Recovering/Resolving]
  - Dysuria [Unknown]
  - Atrioventricular block first degree [Recovering/Resolving]
  - Gastric polyps [Unknown]
  - Hyperkalaemia [Unknown]
  - Hiatus hernia [Unknown]
  - Hyperglycaemia [Unknown]
  - Peripheral circulatory failure [Unknown]
  - Motor dysfunction [Recovering/Resolving]
  - Sedation [Recovering/Resolving]
  - Bradykinesia [Unknown]
  - Dizziness [Recovering/Resolving]
  - Constipation [Unknown]
  - Muscle rigidity [Recovering/Resolving]
  - Nausea [Unknown]
  - Blood creatine increased [Unknown]
  - Blood cholesterol decreased [Unknown]
  - Blood potassium increased [Unknown]
  - Blood urea increased [Unknown]
  - Initial insomnia [Unknown]
  - Orthostatic hypotension [Unknown]
  - Labelled drug-drug interaction issue [Recovered/Resolved]
  - Micturition disorder [Unknown]
  - Blood pressure decreased [Unknown]
  - Type 2 diabetes mellitus [Unknown]
  - Depression [Unknown]
  - Autoimmune thyroiditis [Unknown]
  - Cardiac failure [Unknown]
  - Femur fracture [Unknown]
  - Atrial fibrillation [Unknown]
  - Abdominal pain upper [Unknown]
  - Multiple drug therapy [Unknown]
  - Obesity [Unknown]
  - Chronic kidney disease [Unknown]
  - Gastrointestinal disorder [Unknown]
  - Arthralgia [Unknown]
  - Cognitive disorder [Unknown]
  - Stupor [Unknown]
  - Hypotonia [Unknown]
  - Pancreatitis acute [Unknown]
  - Stupor [Unknown]
  - Insomnia [Unknown]
  - Neuroglycopenia [Unknown]
  - Peptic ulcer [Unknown]
  - Abdominal pain upper [Unknown]
  - Hyperkalaemia [Unknown]
  - Coronary artery disease [Unknown]
  - Hypertension [Unknown]
  - Type 2 diabetes mellitus [Unknown]
  - Deep vein thrombosis [Unknown]
  - Pruritus [Unknown]
  - Drug ineffective [Unknown]
  - Medication error [Unknown]
  - Off label use [Unknown]
  - Product use issue [Unknown]
  - Product administration error [Unknown]

NARRATIVE: CASE EVENT DATE: 20010101
